FAERS Safety Report 9949872 (Version 1)
Quarter: 2014Q1

REPORT INFORMATION
  Report Type: Report from Study
  Country: US (occurrence: US)
  Receive Date: 20140304
  Receipt Date: 20140304
  Transmission Date: 20141002
  Serious: No
  Sender: FDA-Public Use
  Company Number: US-ABBVIE-13P-163-1067635-00

PATIENT
  Age: 52 Year
  Sex: Female

DRUGS (7)
  1. HUMIRA [Suspect]
     Route: 058
     Dates: start: 201205
  2. IMITREX [Concomitant]
     Indication: MIGRAINE
     Dosage: 1-2 A DAY AS NEEDED
  3. FIORINAL [Concomitant]
     Indication: MIGRAINE
     Dosage: 50/32540MG UPO TO 2 PER DAY PRN
  4. ZOLOFT [Concomitant]
     Indication: DEPRESSION
  5. WELLBUTRIN [Concomitant]
     Indication: DEPRESSION
  6. LOTENSIN [Concomitant]
     Indication: BLOOD PRESSURE
     Dosage: 20/12.5MG QD
  7. CRYSELLE [Concomitant]
     Indication: CONTRACEPTION

REACTIONS (4)
  - Hyperaesthesia [Not Recovered/Not Resolved]
  - Pain [Not Recovered/Not Resolved]
  - Vomiting [Not Recovered/Not Resolved]
  - Back pain [Not Recovered/Not Resolved]
